FAERS Safety Report 6180463-4 (Version None)
Quarter: 2009Q2

REPORT INFORMATION
  Report Type: 
  Country: None (occurrence: None)
  Receive Date: 20090506
  Receipt Date: 20090424
  Transmission Date: 20091009
  Serious: Yes (Hospitalization, Other)
  Sender: FDA-Public Use
  Company Number: US-PFIZER INC-2005042630

PATIENT
  Sex: Female

DRUGS (7)
  1. PROVERA [Suspect]
     Indication: HORMONE REPLACEMENT THERAPY
     Route: 048
     Dates: start: 19910101, end: 19950101
  2. PROVERA [Suspect]
     Indication: MENOPAUSE
  3. PREMARIN [Suspect]
     Indication: HORMONE REPLACEMENT THERAPY
     Dates: start: 19910101, end: 19950101
  4. PREMARIN [Suspect]
     Indication: MENOPAUSE
  5. PREMPRO [Suspect]
     Indication: HORMONE REPLACEMENT THERAPY
     Dates: start: 19950101, end: 20030225
  6. PREMPRO [Suspect]
     Indication: MENOPAUSE
  7. EFFEXOR [Concomitant]
     Indication: ANXIETY
     Dosage: UNK
     Dates: start: 20001201

REACTIONS (3)
  - DEEP VEIN THROMBOSIS [None]
  - OVARIAN CANCER [None]
  - PULMONARY EMBOLISM [None]
